FAERS Safety Report 9059105 (Version 1)
Quarter: 2013Q1

REPORT INFORMATION
  Report Type: Spontaneous
  Country: US (occurrence: US)
  Receive Date: 20130211
  Receipt Date: 20130211
  Transmission Date: 20140127
  Serious: No
  Sender: FDA-Public Use
  Company Number: US-BRISTOL-MYERS SQUIBB COMPANY-16875544

PATIENT
  Age: 66 Year
  Sex: Female

DRUGS (13)
  1. METFORMIN HCL TABS [Suspect]
     Indication: DIABETES MELLITUS
  2. NEURONTIN [Concomitant]
  3. BUMEX [Concomitant]
  4. JANUMET [Concomitant]
  5. ELAVIL [Concomitant]
  6. METOPROLOL [Concomitant]
     Dosage: METOPROLOL ER
  7. OXCARBAZEPINE [Concomitant]
  8. SAVELLA [Concomitant]
  9. OXYCODONE [Concomitant]
  10. LISINOPRIL [Concomitant]
  11. AMBIEN [Concomitant]
  12. WARFARIN [Concomitant]
  13. DEXLANSOPRAZOLE [Concomitant]

REACTIONS (2)
  - Abdominal pain upper [Recovering/Resolving]
  - Nausea [Recovering/Resolving]
